FAERS Safety Report 8536719 (Version 3)
Quarter: 2013Q2

REPORT INFORMATION
  Report Type: Spontaneous
  Country: US (occurrence: US)
  Receive Date: 20120430
  Receipt Date: 20130425
  Transmission Date: 20140414
  Serious: Yes (Other)
  Sender: FDA-Public Use
  Company Number: US-ASTRAZENECA-2012SE26374

PATIENT
  Age: 80 Year
  Sex: Female

DRUGS (2)
  1. ARIMIDEX [Suspect]
     Route: 048
     Dates: start: 2007
  2. IV CALCIUM [Concomitant]
     Route: 042

REACTIONS (5)
  - Bone cancer [Unknown]
  - Breast cancer female [Unknown]
  - Adverse event [Unknown]
  - Lymphoma [Unknown]
  - Intentional drug misuse [Unknown]
